FAERS Safety Report 7571574-7 (Version None)
Quarter: 2011Q2

REPORT INFORMATION
  Report Type: 
  Country: None (occurrence: None)
  Receive Date: 20110624
  Receipt Date: 20110610
  Transmission Date: 20111010
  Serious: Yes (Other)
  Sender: FDA-Public Use
  Company Number: US-WATSON-2011-08176

PATIENT
  Sex: Female

DRUGS (2)
  1. AROMASIN [Suspect]
     Indication: BREAST CANCER
     Dosage: 25 MG, UNK
     Route: 048
     Dates: start: 20050421, end: 20090214
  2. TRELSTAR [Suspect]
     Indication: BREAST CANCER
     Dosage: UNK
     Route: 030
     Dates: start: 20050421, end: 20060703

REACTIONS (1)
  - FRACTURE [None]
